FAERS Safety Report 12890873 (Version 1)
Quarter: 2016Q4

REPORT INFORMATION
  Report Type: Spontaneous
  Country: AT (occurrence: AT)
  Receive Date: 20161027
  Receipt Date: 20161027
  Transmission Date: 20170207
  Serious: Yes (Other)
  Sender: FDA-Public Use
  Company Number: AT-SA-2016SA194717

PATIENT
  Sex: Female

DRUGS (1)
  1. TRIAMCINOLONE ACETONIDE. [Suspect]
     Active Substance: TRIAMCINOLONE ACETONIDE
     Indication: BACK PAIN
     Route: 065

REACTIONS (5)
  - Cardiac valve replacement complication [Recovered/Resolved]
  - Transvalvular pressure gradient [Recovered/Resolved]
  - Intracardiac thrombus [Recovered/Resolved]
  - Dyspnoea [Recovered/Resolved]
  - Cardiac valve disease [Recovered/Resolved]
